FAERS Safety Report 5091369-6 (Version None)
Quarter: 2006Q3

REPORT INFORMATION
  Report Type: 
  Country: None (occurrence: None)
  Receive Date: 20060824
  Receipt Date: 20060809
  Transmission Date: 20061208
  Serious: Yes (Hospitalization)
  Sender: FDA-Public Use
  Company Number: 2006RL000210

PATIENT
  Age: 75 Year
  Sex: Male

DRUGS (2)
  1. PROPAFENONE HCL [Suspect]
     Indication: ATRIAL FLUTTER
     Dosage: 1 DF;QD;PO
     Route: 048
     Dates: end: 20060507
  2. PROPAFENONE HCL [Suspect]
     Indication: CARDIAC FIBRILLATION
     Dosage: 1 DF;QD;PO
     Route: 048
     Dates: end: 20060507

REACTIONS (7)
  - AMNESIA [None]
  - FALL [None]
  - HYPERKALAEMIA [None]
  - IATROGENIC INJURY [None]
  - NODAL RHYTHM [None]
  - SINUS ARRHYTHMIA [None]
  - SINUS BRADYCARDIA [None]
